FAERS Safety Report 5625413-1 (Version None)
Quarter: 2008Q1

REPORT INFORMATION
  Report Type: 
  Country: None (occurrence: None)
  Receive Date: 20080211
  Receipt Date: 20080204
  Transmission Date: 20080703
  Serious: Yes (Other)
  Sender: FDA-Public Use
  Company Number: 18305

PATIENT
  Age: 76 Year
  Sex: Male

DRUGS (8)
  1. VINCRISTINE [Suspect]
     Indication: B-CELL LYMPHOMA
     Dosage: 2 MG OTHER
     Route: 050
  2. CYCLOPHOSPHAMIDE [Suspect]
     Indication: B-CELL LYMPHOMA
  3. FUROSEMIDE [Concomitant]
  4. PARENTERAL [Concomitant]
  5. ORAL FLUIDS [Concomitant]
  6. DOXORUBICIN HCL [Suspect]
     Indication: B-CELL LYMPHOMA
  7. PREDNISONE TAB [Suspect]
     Indication: B-CELL LYMPHOMA
  8. RITUXIMAB [Suspect]
     Indication: B-CELL LYMPHOMA

REACTIONS (8)
  - AORTIC ANEURYSM [None]
  - ATELECTASIS [None]
  - CARDIAC FAILURE CONGESTIVE [None]
  - CONSTIPATION [None]
  - DIAPHRAGMATIC PARALYSIS [None]
  - MYALGIA [None]
  - PARAESTHESIA [None]
  - PHRENIC NERVE PARALYSIS [None]
